FAERS Safety Report 7186155-7 (Version None)
Quarter: 2010Q4

REPORT INFORMATION
  Report Type: 
  Country: None (occurrence: None)
  Receive Date: 20101222
  Receipt Date: 20100615
  Transmission Date: 20110411
  Serious: No
  Sender: FDA-Public Use
  Company Number: US-AMGEN-TCS418779

PATIENT

DRUGS (3)
  1. ENBREL [Suspect]
     Indication: PSORIATIC ARTHROPATHY
     Dosage: 25 MG, 2 TIMES/WK
     Route: 058
     Dates: start: 20041201
  2. ENBREL [Suspect]
     Indication: PSORIASIS
  3. CLOBETASOL [Concomitant]
     Dosage: .05 %, UNK

REACTIONS (10)
  - ARTHRALGIA [None]
  - ARTHRITIS [None]
  - GENERALISED ERYTHEMA [None]
  - JOINT SWELLING [None]
  - LOCALISED OEDEMA [None]
  - NECK PAIN [None]
  - OEDEMA PERIPHERAL [None]
  - PAIN [None]
  - PAIN IN EXTREMITY [None]
  - PSORIASIS [None]
